FAERS Safety Report 23356910 (Version 2)
Quarter: 2024Q1

REPORT INFORMATION
  Report Type: Spontaneous
  Country: HR (occurrence: HR)
  Receive Date: 20240102
  Receipt Date: 20240110
  Transmission Date: 20240410
  Serious: Yes (Hospitalization, Other)
  Sender: FDA-Public Use
  Company Number: HR-009507513-2312HRV003890

PATIENT
  Age: 56 Year
  Sex: Male

DRUGS (7)
  1. PEMETREXED [Suspect]
     Active Substance: PEMETREXED
     Indication: Lung adenocarcinoma
     Dosage: 1100 MILLIGRAM
     Route: 042
  2. PEMETREXED [Suspect]
     Active Substance: PEMETREXED
     Dosage: 1000 MILLIGRAM
     Route: 042
     Dates: start: 20221009
  3. CISPLATIN [Suspect]
     Active Substance: CISPLATIN
     Indication: Lung adenocarcinoma
     Dosage: 170 MILLIGRAM
     Route: 065
  4. CISPLATIN [Suspect]
     Active Substance: CISPLATIN
     Dosage: 140 MILLIGRAM
     Route: 065
     Dates: start: 20201009
  5. KEYTRUDA [Suspect]
     Active Substance: PEMBROLIZUMAB
     Indication: Lung adenocarcinoma
     Dosage: 200 MILLIGRAM
     Route: 042
     Dates: start: 2020
  6. KEYTRUDA [Suspect]
     Active Substance: PEMBROLIZUMAB
     Dosage: 200 MILLIGRAM
     Route: 042
     Dates: start: 20201009
  7. PERINDOPRIL ERBUMINE [Concomitant]
     Active Substance: PERINDOPRIL ERBUMINE
     Indication: Hypertension
     Dosage: 8 MG 1X1 TABLET
     Route: 065

REACTIONS (15)
  - Parathyroid tumour benign [Unknown]
  - Thyroid adenoma [Unknown]
  - Pneumonitis [Unknown]
  - Malignant neoplasm progression [Unknown]
  - Pulmonary fibrosis [Unknown]
  - Deep vein thrombosis [Unknown]
  - Blood calcium increased [Unknown]
  - Pulmonary calcification [Unknown]
  - Blood parathyroid hormone increased [Unknown]
  - Hyperparathyroidism primary [Unknown]
  - Paraesthesia [Recovered/Resolved]
  - Atelectasis [Unknown]
  - Lung consolidation [Unknown]
  - Pleural adhesion [Unknown]
  - Arteriosclerosis [Unknown]

NARRATIVE: CASE EVENT DATE: 20201102
